FAERS Safety Report 8450341 (Version 2)
Quarter: 2012Q4

REPORT INFORMATION
  Report Type: 
  Country: PL (occurrence: PL)
  Receive Date: 20120309
  Receipt Date: 20120914
  Transmission Date: 20130627
  Serious: Yes (Hospitalization, Other)
  Sender: FDA-Public Use
  Company Number: PL-AMGEN-POLSP2012006363

PATIENT
  Age: 45 Year
  Sex: Female
  Weight: 63 kg

DRUGS (10)
  1. ENBREL [Suspect]
     Indication: PSORIATIC ARTHROPATHY
     Dosage: 50 mg, once weekly
     Route: 058
     Dates: start: 20090920, end: 20111209
  2. ENBREL [Suspect]
     Indication: DERMATITIS PSORIASIFORM
  3. HUMIRA [Suspect]
     Dosage: UNK
     Dates: start: 20120322, end: 20120531
  4. MICARDIS PLUS [Concomitant]
     Dosage: UNK
     Route: 048
     Dates: start: 20110902
  5. DAIVOBET [Concomitant]
     Dosage: UNK UNK, qd
  6. UREA [Concomitant]
     Dosage: 15 %, qd
  7. BEDICORT G [Concomitant]
     Dosage: UNK
  8. PARAFFIN [Concomitant]
     Dosage: UNK
  9. ENCORTON                           /00044701/ [Concomitant]
     Dosage: 10 mg, UNK
  10. KALIPOZ [Concomitant]
     Dosage: UNK

REACTIONS (3)
  - Sarcoidosis [Unknown]
  - Tuberculosis [Unknown]
  - Erythema nodosum [Not Recovered/Not Resolved]
